FAERS Safety Report 9261690 (Version 2)
Quarter: 2013Q2

REPORT INFORMATION
  Report Type: Report from Study
  Country: US (occurrence: US)
  Receive Date: 20130429
  Receipt Date: 20130524
  Transmission Date: 20140414
  Serious: Yes (Other)
  Sender: FDA-Public Use
  Company Number: US-TEVA-401257USA

PATIENT
  Age: 16 Year
  Sex: Female

DRUGS (4)
  1. CLARAVIS [Suspect]
     Route: 048
     Dates: start: 20130221, end: 201304
  2. PROZAC [Concomitant]
  3. TRAZODONE [Concomitant]
  4. AMBIEN [Concomitant]

REACTIONS (1)
  - Suicidal ideation [Recovering/Resolving]
